FAERS Safety Report 6532663-9 (Version None)
Quarter: 2009Q4

REPORT INFORMATION
  Report Type: 
  Country: None (occurrence: None)
  Receive Date: 20091231
  Receipt Date: 20091217
  Transmission Date: 20100525
  Serious: Yes (Death, Other)
  Sender: FDA-Public Use
  Company Number: AMAG200900080

PATIENT
  Age: 70 Year
  Sex: Female
  Weight: 59.3 kg

DRUGS (10)
  1. FERAHEME [Suspect]
     Indication: IRON DEFICIENCY ANAEMIA
     Dosage: 510 MG, SINGLE, INTRAVENOUS
     Route: 042
     Dates: start: 20091210, end: 20091210
  2. FERAHEME [Suspect]
     Indication: RENAL IMPAIRMENT
     Dosage: 510 MG, SINGLE, INTRAVENOUS
     Route: 042
     Dates: start: 20091210, end: 20091210
  3. BUMEX [Concomitant]
  4. MICARDIS [Concomitant]
  5. CELLCEPT [Concomitant]
  6. CLONIDINE [Concomitant]
  7. ASPIRIN [Concomitant]
  8. HYDRALAZINE HCL [Concomitant]
  9. AMITRIPTYLINE HCL [Concomitant]
  10. LISINOPRIL [Concomitant]

REACTIONS (2)
  - ASTHENIA [None]
  - DYSPNOEA [None]
